FAERS Safety Report 21701637 (Version 1)
Quarter: 2022Q4

REPORT INFORMATION
  Report Type: Spontaneous
  Country: DE (occurrence: None)
  Receive Date: 20221208
  Receipt Date: 20221208
  Transmission Date: 20230112
  Serious: Yes (Hospitalization, Other)
  Sender: FDA-Public Use
  Company Number: 2022A395714

PATIENT
  Age: 51 Year
  Sex: Male

DRUGS (1)
  1. XIGDUO XR [Suspect]
     Active Substance: DAPAGLIFLOZIN PROPANEDIOL\METFORMIN HYDROCHLORIDE
     Indication: Type 2 diabetes mellitus
     Dosage: XIGDUO 5/1000 1-0-1
     Route: 065
     Dates: start: 20200723, end: 20221005

REACTIONS (3)
  - Pyrexia [Unknown]
  - Fournier^s gangrene [Recovered/Resolved with Sequelae]
  - General physical health deterioration [Unknown]

NARRATIVE: CASE EVENT DATE: 20221003
